FAERS Safety Report 12787772 (Version 1)
Quarter: 2016Q3

REPORT INFORMATION
  Report Type: Spontaneous
  Country: US (occurrence: US)
  Receive Date: 20160927
  Receipt Date: 20160927
  Transmission Date: 20161109
  Serious: Yes (Hospitalization)
  Sender: FDA-Public Use
  Company Number: None

PATIENT
  Age: 71 Year
  Sex: Male
  Weight: 89.9 kg

DRUGS (2)
  1. PEMETREXED [Suspect]
     Active Substance: PEMETREXED
     Indication: UPPER RESPIRATORY TRACT INFECTION
     Dosage: 1000 MG OTHER IV
     Route: 042
     Dates: start: 20160611, end: 20160611
  2. CARBOPLATIN. [Suspect]
     Active Substance: CARBOPLATIN
     Indication: UPPER RESPIRATORY TRACT INFECTION
     Dosage: 450 MG OTHER IV
     Route: 042
     Dates: start: 20160611, end: 20160611

REACTIONS (5)
  - Pyrexia [None]
  - Neutropenia [None]
  - Burning sensation [None]
  - Chills [None]
  - Hypotension [None]

NARRATIVE: CASE EVENT DATE: 20160612
